FAERS Safety Report 10703991 (Version 1)
Quarter: 2015Q1

REPORT INFORMATION
  Report Type: Spontaneous
  Country: US (occurrence: None)
  Receive Date: 20150108
  Receipt Date: 20150108
  Transmission Date: 20150721
  Serious: Yes (Disabling)
  Sender: FDA-Public Use
  Company Number: None

PATIENT
  Age: 48 Year
  Sex: Female
  Weight: 55.79 kg

DRUGS (1)
  1. CIPROFLOXACIN. [Suspect]
     Active Substance: CIPROFLOXACIN
     Indication: KIDNEY INFECTION
     Dosage: 1 TABLET 2 TIMES PER DAY, TWICE DAILY, TAKEN BY MOUTH.
     Route: 048
     Dates: start: 20141229, end: 20141230

REACTIONS (5)
  - Coordination abnormal [None]
  - Pain in extremity [None]
  - Asthenia [None]
  - Activities of daily living impaired [None]
  - Impaired work ability [None]

NARRATIVE: CASE EVENT DATE: 20141231
